FAERS Safety Report 7104755-7 (Version None)
Quarter: 2010Q4

REPORT INFORMATION
  Report Type: 
  Country: None (occurrence: None)
  Receive Date: 20101109
  Receipt Date: 20101026
  Transmission Date: 20110411
  Serious: Yes (Hospitalization)
  Sender: FDA-Public Use
  Company Number: 2010SP002257

PATIENT
  Age: 83 Year
  Sex: Female

DRUGS (14)
  1. ALVESCO [Suspect]
     Indication: ASTHMA
     Dosage: 200 UG; BID; INHALATION, 400 UG; BID; INHALATION
     Route: 055
     Dates: start: 20090401, end: 20091112
  2. ALVESCO [Suspect]
     Indication: ASTHMA
     Dosage: 200 UG; BID; INHALATION, 400 UG; BID; INHALATION
     Route: 055
     Dates: start: 20091119, end: 20100120
  3. MAGMITT (MAGNESIUM OXIDE) [Suspect]
     Indication: CONSTIPATION
     Dosage: 990 MG; ORAL
     Route: 048
  4. DEXTROMETHORPHAN HYDROBROMIDE [Suspect]
     Indication: ASTHMA
     Dosage: 90 MG; ORAL
     Route: 048
  5. FERROMIA (FERROUS CITRATE) [Suspect]
     Indication: IRON DEFICIENCY ANAEMIA
     Dosage: 100 MG; ORAL
     Route: 048
     Dates: end: 20100216
  6. CINAL /00257901/ (CINAL /00257901/) [Suspect]
     Indication: CHLOASMA
     Dosage: 1 GM; ORAL
     Route: 048
     Dates: end: 20100216
  7. SELBEX (TEPRENONE) [Suspect]
     Indication: GASTRITIS
     Dosage: 0.5 GM; ORAL
     Route: 048
     Dates: end: 20100216
  8. MONTELUKAST SODIUM [Suspect]
     Indication: ASTHMA
     Dosage: 10 MG; ORAL
     Route: 048
     Dates: start: 20090630
  9. HOKUNALIN (TULOBUTEROL HYDROCHLORIDE) [Suspect]
     Indication: ASTHMA
     Dosage: 1 GM; TOPICAL
     Route: 061
     Dates: start: 20090630
  10. TSUMURA BYAKKOKANINJINTO (TSUMURA BYAKKOKANINJINTO) [Suspect]
     Indication: ASTHMA
     Dosage: ORAL
     Route: 048
     Dates: start: 20091020
  11. ZANTAC [Suspect]
     Indication: GASTRITIS
     Dosage: 300 MG; ORAL
     Route: 048
     Dates: start: 20091020
  12. FAMOTIDINE [Concomitant]
  13. SYMBICORT [Concomitant]
  14. KAKKON-TO [Concomitant]

REACTIONS (6)
  - ASTHMA [None]
  - ELECTROCARDIOGRAM ST SEGMENT ABNORMAL [None]
  - GASTRITIS [None]
  - MYOCARDIAL INFARCTION [None]
  - STRESS CARDIOMYOPATHY [None]
  - WHEEZING [None]
